FAERS Safety Report 10310530 (Version 1)
Quarter: 2014Q3

REPORT INFORMATION
  Report Type: Spontaneous
  Country: US (occurrence: None)
  Receive Date: 20140716
  Receipt Date: 20140716
  Transmission Date: 20150326
  Serious: Yes (Hospitalization)
  Sender: FDA-Public Use
  Company Number: None

PATIENT
  Age: 57 Year
  Sex: Male
  Weight: 60.78 kg

DRUGS (2)
  1. ERBITUX [Suspect]
     Active Substance: CETUXIMAB
     Dosage: TOTAL DOSE ADMINISTERED
  2. TAXOTERE [Suspect]
     Active Substance: DOCETAXEL
     Dosage: TOTAL DOSE ADMINISTERED

REACTIONS (4)
  - Pain [None]
  - Pneumonia aspiration [None]
  - Cronobacter test positive [None]
  - Laboratory test interference [None]

NARRATIVE: CASE EVENT DATE: 20140410
